FAERS Safety Report 9994891 (Version 1)
Quarter: 2014Q1

REPORT INFORMATION
  Report Type: Spontaneous
  Country: US (occurrence: None)
  Receive Date: 20140307
  Receipt Date: 20140307
  Transmission Date: 20141002
  Serious: Yes (Hospitalization, Other)
  Sender: FDA-Public Use
  Company Number: None

PATIENT
  Age: 56 Year
  Sex: Male
  Weight: 114.76 kg

DRUGS (1)
  1. TAMSULOSIN [Suspect]
     Indication: URINARY RETENTION
     Dosage: 1 PILL  ONCE DAILY SWALLOW
     Route: 048
     Dates: start: 20140228

REACTIONS (1)
  - Erection increased [None]
